FAERS Safety Report 9423099 (Version 2)
Quarter: 2013Q3

REPORT INFORMATION
  Report Type: Spontaneous
  Country: US (occurrence: US)
  Receive Date: 20130726
  Receipt Date: 20130806
  Transmission Date: 20140515
  Serious: No
  Sender: FDA-Public Use
  Company Number: US-009507513-1307USA005220

PATIENT
  Sex: 0

DRUGS (2)
  1. AFRIN SEVERE CONGESTION SPRAY WITH MENTHOL [Suspect]
     Indication: PRODUCT USED FOR UNKNOWN INDICATION
     Dosage: UNK, UNKNOWN
     Route: 045
  2. AFRIN SEVERE CONGESTION SPRAY WITH MENTHOL [Suspect]
     Dosage: UNK

REACTIONS (2)
  - Sneezing [Unknown]
  - Discomfort [Unknown]
